FAERS Safety Report 9624070 (Version 1)
Quarter: 2013Q4

REPORT INFORMATION
  Report Type: Spontaneous
  Country: US (occurrence: None)
  Receive Date: 20131010
  Receipt Date: 20131010
  Transmission Date: 20140711
  Serious: Yes (Other)
  Sender: FDA-Public Use
  Company Number: B0927877A

PATIENT
  Age: 34 Year
  Sex: Female

DRUGS (8)
  1. LAMIVUDINE-HIV [Suspect]
     Indication: ANTIVIRAL TREATMENT
  2. ETHAMBUTOL [Suspect]
     Indication: TUBERCULOUS PLEURISY
  3. ISONIAZID [Suspect]
     Indication: TUBERCULOUS PLEURISY
  4. PYRAZINAMIDE [Suspect]
     Indication: TUBERCULOUS PLEURISY
  5. RIFAMPICIN [Suspect]
     Indication: TUBERCULOUS PLEURISY
  6. STREPTOMYCIN [Suspect]
     Indication: TUBERCULOUS PLEURISY
  7. EFAVIRENZ [Suspect]
     Indication: ANTIVIRAL TREATMENT
  8. TENOFOVIR [Suspect]

REACTIONS (7)
  - Jaundice [None]
  - Hepatomegaly [None]
  - Pleural effusion [None]
  - Drug-induced liver injury [None]
  - Disseminated tuberculosis [None]
  - Cholestasis [None]
  - Hepatitis [None]
